FAERS Safety Report 22955934 (Version 3)
Quarter: 2024Q4

REPORT INFORMATION
  Report Type: Spontaneous
  Country: US (occurrence: US)
  Receive Date: 20230919
  Receipt Date: 20241007
  Transmission Date: 20250114
  Serious: Yes (Disabling, Other)
  Sender: NOVO NORDISK
  Company Number: US-NOVOPROD-1113488

PATIENT
  Sex: Male

DRUGS (2)
  1. NOVOLOG [Suspect]
     Active Substance: INSULIN ASPART
     Indication: Type 2 diabetes mellitus
     Dosage: SLIDING SCALE
     Route: 058
  2. LEVEMIR [Suspect]
     Active Substance: INSULIN DETEMIR
     Indication: Type 2 diabetes mellitus
     Dosage: SLIDING SCALE
     Route: 058

REACTIONS (8)
  - Disability [Unknown]
  - Myocardial infarction [Unknown]
  - Visual impairment [Unknown]
  - Loss of consciousness [Unknown]
  - Retinal disorder [Not Recovered/Not Resolved]
  - Cervical vertebral fracture [Unknown]
  - Surgery [Unknown]
  - Tremor [Unknown]

NARRATIVE: CASE EVENT DATE: 20160101
